FAERS Safety Report 6158658-5 (Version None)
Quarter: 2009Q2

REPORT INFORMATION
  Report Type: 
  Country: None (occurrence: None)
  Receive Date: 20090417
  Receipt Date: 20090127
  Transmission Date: 20091009
  Serious: Yes (Death, Other)
  Sender: FDA-Public Use
  Company Number: CN-BAYER-200918232GPV

PATIENT
  Age: 77 Year
  Sex: Female

DRUGS (2)
  1. ASPIRIN [Suspect]
     Indication: EMBOLISM
     Dosage: TOTAL DAILY DOSE: 100 MG
     Route: 048
     Dates: start: 20070501, end: 20070501
  2. ENOXAPARIN SODIUM [Suspect]
     Indication: EMBOLISM
     Dosage: TOTAL DAILY DOSE: 120 MG
     Route: 058
     Dates: start: 20070501, end: 20070501

REACTIONS (3)
  - GASTROINTESTINAL HAEMORRHAGE [None]
  - PERITONEAL HAEMATOMA [None]
  - RENAL FAILURE ACUTE [None]
